FAERS Safety Report 15991545 (Version 2)
Quarter: 2019Q3

REPORT INFORMATION
  Report Type: Spontaneous
  Country: CN (occurrence: CN)
  Receive Date: 20190221
  Receipt Date: 20190715
  Transmission Date: 20191004
  Serious: Yes (Hospitalization, Other)
  Sender: FDA-Public Use
  Company Number: CN-PFIZER INC-2019073641

PATIENT
  Age: 44 Year
  Sex: Male
  Weight: 75 kg

DRUGS (11)
  1. PHARMORUBICIN [Suspect]
     Active Substance: EPIRUBICIN
     Indication: CHEMOTHERAPY
     Dosage: 140 MG, 1X/DAY
     Route: 041
     Dates: start: 20190124, end: 20190124
  2. MABTHERA [Suspect]
     Active Substance: RITUXIMAB
     Indication: CHEMOTHERAPY
     Dosage: 0.1 G, 1X/DAY
     Route: 041
     Dates: start: 20190123, end: 20190123
  3. MABTHERA [Suspect]
     Active Substance: RITUXIMAB
     Dosage: 0.5 G, 1X/DAY
     Route: 041
     Dates: start: 20190123, end: 20190123
  4. DEXAMETHASONE SODIUM PHOSPHATE. [Suspect]
     Active Substance: DEXAMETHASONE SODIUM PHOSPHATE
     Indication: CHEMOTHERAPY
     Dosage: 15 MG, 1X/DAY
     Route: 041
     Dates: start: 20190120, end: 20190124
  5. SODIUM CHLORIDE. [Concomitant]
     Active Substance: SODIUM CHLORIDE
     Dosage: 250 ML, 1X/DAY
     Route: 041
     Dates: start: 20190124, end: 20190124
  6. PREDNISONE. [Suspect]
     Active Substance: PREDNISONE
     Indication: CHEMOTHERAPY
     Dosage: 30 MG, 3X/DAY
     Route: 048
     Dates: start: 20190124, end: 20190129
  7. SODIUM CHLORIDE. [Concomitant]
     Active Substance: SODIUM CHLORIDE
     Dosage: 500 ML, 1X/DAY
     Route: 041
     Dates: start: 20190124, end: 20190124
  8. ENDOXAN [CYCLOPHOSPHAMIDE] [Suspect]
     Active Substance: CYCLOPHOSPHAMIDE
     Indication: CHEMOTHERAPY
     Dosage: 1.3 G, 1X/DAY
     Route: 041
     Dates: start: 20190124, end: 20190124
  9. VINDESINE SULFATE [Suspect]
     Active Substance: VINDESINE SULFATE
     Indication: CHEMOTHERAPY
     Dosage: 4 MG, 1X/DAY
     Route: 042
     Dates: start: 20190124, end: 20190124
  10. SODIUM CHLORIDE. [Concomitant]
     Active Substance: SODIUM CHLORIDE
     Indication: VEHICLE SOLUTION USE
     Dosage: 100 ML, 1X/DAY
     Route: 041
     Dates: start: 20190120, end: 20190124
  11. SODIUM CHLORIDE. [Concomitant]
     Active Substance: SODIUM CHLORIDE
     Dosage: 20 ML, 1X/DAY
     Route: 041
     Dates: start: 20190124, end: 20190124

REACTIONS (1)
  - Bone marrow failure [Recovering/Resolving]

NARRATIVE: CASE EVENT DATE: 20190202
